FAERS Safety Report 13266542 (Version 1)
Quarter: 2017Q1

REPORT INFORMATION
  Report Type: Spontaneous
  Country: US (occurrence: US)
  Receive Date: 20170223
  Receipt Date: 20170223
  Transmission Date: 20170428
  Serious: No
  Sender: FDA-Public Use
  Company Number: US-BAUSCH-BL-2016-016924

PATIENT
  Sex: Female

DRUGS (2)
  1. SODIUM SULFACETAMIDE [Suspect]
     Active Substance: SULFACETAMIDE SODIUM
     Dosage: AS DIRECTED, COUPLE DROPS IN HER LEFT EYE EVERY 2 HOURS ON THE FIRST DAY, THEN ONE DROP FOUR TIMES A
     Route: 047
     Dates: start: 20160205, end: 20160211
  2. SODIUM SULFACETAMIDE [Suspect]
     Active Substance: SULFACETAMIDE SODIUM
     Indication: EYE INFECTION
     Dosage: AS DIRECTED
     Route: 047
     Dates: start: 20160204, end: 20160211

REACTIONS (5)
  - Eyelid margin crusting [Unknown]
  - Dry eye [Unknown]
  - Eye pruritus [Unknown]
  - Infection [Recovered/Resolved]
  - Vision blurred [Not Recovered/Not Resolved]

NARRATIVE: CASE EVENT DATE: 2016
